FAERS Safety Report 5694651-4 (Version None)
Quarter: 2008Q2

REPORT INFORMATION
  Report Type: 
  Country: None (occurrence: None)
  Receive Date: 20080404
  Receipt Date: 20080328
  Transmission Date: 20081010
  Serious: Yes (Hospitalization)
  Sender: FDA-Public Use
  Company Number: A0718078A

PATIENT
  Age: 56 Year
  Sex: Female

DRUGS (12)
  1. ADVAIR HFA [Suspect]
     Indication: CHRONIC OBSTRUCTIVE PULMONARY DISEASE
     Dosage: 1PUFF TWICE PER DAY
     Route: 055
  2. TRICOR [Concomitant]
  3. NEXIUM [Concomitant]
  4. METOPROLOL TARTRATE [Concomitant]
  5. SINGULAIR [Concomitant]
  6. ZETIA [Concomitant]
  7. ALBUTEROL [Concomitant]
  8. XALATAN [Concomitant]
  9. TYLENOL (CAPLET) [Concomitant]
  10. VITAMIN D [Concomitant]
  11. ASCORBIC ACID [Concomitant]
  12. NASONEX [Concomitant]

REACTIONS (6)
  - GLAUCOMA [None]
  - HEADACHE [None]
  - NASOPHARYNGITIS [None]
  - PNEUMONIA [None]
  - THROAT IRRITATION [None]
  - VISUAL FIELD DEFECT [None]
